FAERS Safety Report 13671531 (Version 1)
Quarter: 2017Q2

REPORT INFORMATION
  Report Type: Spontaneous
  Country: US (occurrence: US)
  Receive Date: 20170620
  Receipt Date: 20170620
  Transmission Date: 20170830
  Serious: No
  Sender: FDA-Public Use
  Company Number: US-ROCHE-1239182

PATIENT
  Sex: Female

DRUGS (4)
  1. AFINITOR [Suspect]
     Active Substance: EVEROLIMUS
     Indication: INFLAMMATORY CARCINOMA OF THE BREAST
     Route: 065
  2. METFORMIN [Suspect]
     Active Substance: METFORMIN HYDROCHLORIDE
     Indication: INFLAMMATORY CARCINOMA OF THE BREAST
     Route: 065
  3. EMERGEN-C [Concomitant]
     Active Substance: VITAMINS
  4. XELODA [Suspect]
     Active Substance: CAPECITABINE
     Indication: INFLAMMATORY CARCINOMA OF THE BREAST
     Route: 065
     Dates: start: 2008

REACTIONS (2)
  - Neuropathy peripheral [Unknown]
  - Asthenia [Unknown]
